FAERS Safety Report 13911343 (Version 1)
Quarter: 2017Q3

REPORT INFORMATION
  Report Type: Report from Study
  Country: RU (occurrence: RU)
  Receive Date: 20170828
  Receipt Date: 20170828
  Transmission Date: 20171127
  Serious: Yes (Other)
  Sender: FDA-Public Use
  Company Number: RU-JNJFOC-20170822024

PATIENT
  Age: 24 Year
  Sex: Female

DRUGS (1)
  1. REMICADE [Suspect]
     Active Substance: INFLIXIMAB
     Indication: ANKYLOSING SPONDYLITIS
     Dosage: 7+24 INFUSIONS
     Route: 042
     Dates: start: 2008, end: 2012

REACTIONS (1)
  - Pulmonary tuberculosis [Recovered/Resolved with Sequelae]

NARRATIVE: CASE EVENT DATE: 201202
